FAERS Safety Report 7880731-1 (Version None)
Quarter: 2011Q4

REPORT INFORMATION
  Report Type: 
  Country: None (occurrence: None)
  Receive Date: 20111101
  Receipt Date: 20111019
  Transmission Date: 20120403
  Serious: Yes (Other)
  Sender: FDA-Public Use
  Company Number: CA-ELI_LILLY_AND_COMPANY-CA201110004927

PATIENT
  Sex: Male

DRUGS (9)
  1. CLOPIXOL [Concomitant]
  2. RISPERDAL [Concomitant]
  3. INVEGA [Concomitant]
  4. LUVOX [Concomitant]
  5. COGENTIN [Concomitant]
  6. EFFEXOR [Concomitant]
  7. ZYPREXA [Suspect]
     Indication: SCHIZOPHRENIA, PARANOID TYPE
     Dosage: 10 MG, EACH EVENING
     Dates: start: 20050623
  8. ZYPREXA [Suspect]
     Dosage: 2.5 MG, UNK
  9. ZYPREXA [Suspect]
     Dosage: 5 MG, UNK

REACTIONS (2)
  - HYPERGLYCAEMIA [None]
  - WEIGHT INCREASED [None]
